FAERS Safety Report 23395447 (Version 1)
Quarter: 2024Q1

REPORT INFORMATION
  Report Type: Spontaneous
  Country: IL (occurrence: IL)
  Receive Date: 20240112
  Receipt Date: 20240112
  Transmission Date: 20240409
  Serious: Yes (Life-Threatening)
  Sender: FDA-Public Use
  Company Number: IL-OPELLA-2024OHG000976

PATIENT
  Age: 76 Year
  Sex: Male

DRUGS (12)
  1. FEXOFENADINE HYDROCHLORIDE [Suspect]
     Active Substance: FEXOFENADINE HYDROCHLORIDE
     Indication: Product used for unknown indication
  2. CARDILOC TAB 2.5 mg [Concomitant]
     Indication: Product used for unknown indication
  3. FOLIC ACID (REKAH) TAB 5 mg [Concomitant]
     Indication: Product used for unknown indication
  4. LIPITOR TAB 40 mg [Concomitant]
     Indication: Product used for unknown indication
  5. MICROPIRIN TAB 100 mg [Concomitant]
     Indication: Product used for unknown indication
  6. NEXIUM TAB 40 mg [Concomitant]
     Indication: Product used for unknown indication
  7. PREDNISONE TAB 5 mg [Concomitant]
     Indication: Product used for unknown indication
  8. RAPAMUNE [Concomitant]
     Active Substance: SIROLIMUS
     Indication: Product used for unknown indication
  9. TACROCEL CAP 1 mg [Concomitant]
     Indication: Product used for unknown indication
  10. GLUCOMIN CPL 850 mg [Concomitant]
     Indication: Product used for unknown indication
  11. TAMSULIN CAP 0.4 mg [Concomitant]
  12. VASODIP TAB 10 mg [Concomitant]
     Indication: Product used for unknown indication

REACTIONS (1)
  - Delirium [Unknown]
